FAERS Safety Report 18756248 (Version 1)
Quarter: 2021Q1

REPORT INFORMATION
  Report Type: Spontaneous
  Country: US (occurrence: US)
  Receive Date: 20210117
  Receipt Date: 20210117
  Transmission Date: 20210419
  Serious: Yes (Hospitalization)
  Sender: FDA-Public Use
  Company Number: None

PATIENT
  Age: 76 Year
  Sex: Female
  Weight: 78.3 kg

DRUGS (19)
  1. AMOXICILLIN. [Concomitant]
     Active Substance: AMOXICILLIN
  2. GARLIC. [Concomitant]
     Active Substance: GARLIC
  3. VITAMIN B5 [Concomitant]
     Active Substance: PANTOTHENIC ACID
  4. BERBERINE [Concomitant]
     Active Substance: BERBERINE
  5. MANUKA HONEY [Concomitant]
  6. OMEPRAZONE DR [Concomitant]
  7. LACTOBACILLUS [Concomitant]
     Active Substance: LACTOBACILLUS ACIDOPHILUS
  8. OMEGA 3 FISH OIL [Concomitant]
     Active Substance: FISH OIL\OMEGA-3 FATTY ACIDS
  9. IBRANCE [Suspect]
     Active Substance: PALBOCICLIB
     Indication: BREAST CANCER METASTATIC
     Dosage: ?          QUANTITY:1 CAPSULE(S);?
     Route: 048
     Dates: start: 20201223, end: 20210109
  10. FASLODEX [Concomitant]
     Active Substance: FULVESTRANT
  11. OXYGEN. [Concomitant]
     Active Substance: OXYGEN
  12. VITAMIN D3 [Concomitant]
     Active Substance: CHOLECALCIFEROL
  13. VITAMIN B1 [Concomitant]
     Active Substance: THIAMINE HYDROCHLORIDE
  14. DRIED PAPAYA [Concomitant]
  15. GABAPENTIN. [Concomitant]
     Active Substance: GABAPENTIN
  16. APPLE CIDER VINEGAR [Concomitant]
     Active Substance: APPLE CIDER VINEGAR
  17. EXTRA VIRGIN OLIVE OIL [Concomitant]
  18. VITAMIN C [Concomitant]
     Active Substance: ASCORBIC ACID
  19. WALNUTS [Concomitant]

REACTIONS (7)
  - White blood cell count decreased [None]
  - Chills [None]
  - Blood alkaline phosphatase increased [None]
  - Alanine aminotransferase increased [None]
  - Pyrexia [None]
  - Neutrophil count decreased [None]
  - Plateletcrit decreased [None]

NARRATIVE: CASE EVENT DATE: 20210109
